FAERS Safety Report 23034875 (Version 2)
Quarter: 2023Q4

REPORT INFORMATION
  Report Type: Spontaneous
  Country: US (occurrence: US)
  Receive Date: 20231005
  Receipt Date: 20231023
  Transmission Date: 20240110
  Serious: No
  Sender: FDA-Public Use
  Company Number: US-PFIZER INC-PV202300163835

PATIENT
  Age: 66 Year
  Sex: Female
  Weight: 64 kg

DRUGS (1)
  1. IBRANCE [Suspect]
     Active Substance: PALBOCICLIB
     Indication: Invasive ductal breast carcinoma
     Dosage: 1 TABLET ONCE DAILY FOR 21 DAYS FOLLOWED BY 7 DAYS OFF. EVERY CYCLE = 28 DAYS. SWALLOW WHOLE
     Route: 048

REACTIONS (1)
  - Nephropathy [Unknown]
